FAERS Safety Report 20709707 (Version 1)
Quarter: 2022Q2

REPORT INFORMATION
  Report Type: Spontaneous
  Country: None (occurrence: US)
  Receive Date: 20220414
  Receipt Date: 20220414
  Transmission Date: 20220721
  Serious: No
  Sender: FDA-Public Use
  Company Number: US-ITALFARMACO SPA-2127757

PATIENT
  Age: 58 Year
  Sex: Male

DRUGS (4)
  1. TIGLUTIK [Suspect]
     Active Substance: RILUZOLE
     Indication: Amyotrophic lateral sclerosis
     Route: 048
     Dates: start: 20220216
  2. BACLOFEN [Concomitant]
     Active Substance: BACLOFEN
  3. ATROPINE [Concomitant]
     Active Substance: ATROPINE
  4. MUCINEX [Concomitant]
     Active Substance: GUAIFENESIN

REACTIONS (1)
  - Abdominal discomfort [Unknown]
